FAERS Safety Report 4817221-6 (Version None)
Quarter: 2005Q4

REPORT INFORMATION
  Report Type: 
  Country: None (occurrence: None)
  Receive Date: 20051101
  Receipt Date: 20051025
  Transmission Date: 20060501
  Serious: Yes (Hospitalization)
  Sender: FDA-Public Use
  Company Number: FR-JNJFOC-20051005417

PATIENT
  Age: 74 Year
  Sex: Female

DRUGS (9)
  1. DURAGESIC-100 [Suspect]
     Route: 062
  2. DURAGESIC-100 [Suspect]
     Indication: DRUG USE FOR UNKNOWN INDICATION
     Route: 062
  3. RIVOTRIL [Suspect]
     Indication: DRUG USE FOR UNKNOWN INDICATION
     Route: 048
  4. BIOPROFENID. [Concomitant]
     Route: 065
  5. NEXIUM [Concomitant]
     Dosage: 1 TABLET PER DAY
     Route: 065
  6. KETOPROFEN [Concomitant]
     Route: 065
  7. CORTANCYL [Concomitant]
     Route: 065
  8. FOSAMAX [Concomitant]
     Route: 065
  9. OROCAL [Concomitant]
     Route: 065

REACTIONS (8)
  - AGGRESSION [None]
  - CONFUSIONAL STATE [None]
  - DISORIENTATION [None]
  - DRUG TOXICITY [None]
  - HYPONATRAEMIA [None]
  - INCOHERENT [None]
  - OVERDOSE [None]
  - SLEEP PHASE RHYTHM DISTURBANCE [None]
